FAERS Safety Report 6656249-0 (Version None)
Quarter: 2010Q1

REPORT INFORMATION
  Report Type: 
  Country: None (occurrence: None)
  Receive Date: 20100329
  Receipt Date: 20100322
  Transmission Date: 20100710
  Serious: Yes (Other)
  Sender: FDA-Public Use
  Company Number: US-JNJCH-2010007300

PATIENT
  Sex: Female

DRUGS (2)
  1. BENADRYL [Suspect]
     Indication: SWOLLEN TONGUE
     Route: 042
     Dates: start: 20100308, end: 20100308
  2. AMINOPHYLLINE [Concomitant]
     Indication: SWOLLEN TONGUE
     Route: 065

REACTIONS (2)
  - SYNCOPE [None]
  - TREMOR [None]
